FAERS Safety Report 9541874 (Version 2)
Quarter: 2014Q1

REPORT INFORMATION
  Report Type: Spontaneous
  Country: FR (occurrence: FR)
  Receive Date: 20130923
  Receipt Date: 20140224
  Transmission Date: 20141002
  Serious: Yes (Hospitalization)
  Sender: FDA-Public Use
  Company Number: PHHY2013FR105107

PATIENT
  Age: 76 Year
  Sex: Female

DRUGS (4)
  1. GLIVEC [Suspect]
     Indication: ACUTE LYMPHOCYTIC LEUKAEMIA
     Dosage: 400 MG, DAILY
     Route: 048
     Dates: start: 20130601, end: 20130701
  2. GLIVEC [Suspect]
     Dosage: 400 MG, DAILY
     Route: 048
     Dates: start: 20130725
  3. LEVOTHYROX [Concomitant]
     Dosage: 50 UG, DAILY
     Route: 048
  4. ZANEXTRA [Concomitant]
     Dosage: 20 MG/ 10 MG, DAILY
     Route: 048

REACTIONS (1)
  - Cerebrovascular accident [Recovered/Resolved with Sequelae]
